FAERS Safety Report 23965548 (Version 2)
Quarter: 2024Q4

REPORT INFORMATION
  Report Type: Report from Study
  Country: CA (occurrence: CA)
  Receive Date: 20240612
  Receipt Date: 20241003
  Transmission Date: 20250114
  Serious: Yes (Other)
  Sender: Alvotech
  Company Number: CA-JAMP PHARMA CORPORATION-2023-JAM-CA-00857

PATIENT
  Age: 44 Year
  Sex: Female

DRUGS (2)
  1. SIMLANDI [Suspect]
     Active Substance: ADALIMUMAB-RYVK
     Indication: Psoriatic arthropathy
     Dosage: 40 MILLIGRAM, EVERY 2 WEEKS
     Route: 058
  2. SIMLANDI [Suspect]
     Active Substance: ADALIMUMAB-RYVK
     Indication: Psoriatic arthropathy
     Dosage: 40 MILLIGRAM, WEEKLY
     Route: 058
     Dates: start: 20230518

REACTIONS (15)
  - Thrombosis [Recovered/Resolved]
  - Psoriatic arthropathy [Unknown]
  - Illness [Unknown]
  - Synovial cyst [Unknown]
  - Osteoarthritis [Unknown]
  - Lacrimation increased [Unknown]
  - Aphonia [Unknown]
  - Erythema of eyelid [Unknown]
  - Pharyngitis streptococcal [Unknown]
  - Nasopharyngitis [Unknown]
  - Cystitis [Unknown]
  - Psoriasis [Unknown]
  - Arthralgia [Unknown]
  - Laboratory test abnormal [Unknown]
  - Off label use [Recovered/Resolved]

NARRATIVE: CASE EVENT DATE: 20230501
